FAERS Safety Report 21930327 (Version 5)
Quarter: 2024Q2

REPORT INFORMATION
  Report Type: Report from Study
  Country: US (occurrence: US)
  Receive Date: 20230131
  Receipt Date: 20240528
  Transmission Date: 20240715
  Serious: Yes (Other)
  Sender: FDA-Public Use
  Company Number: US-ABBVIE-4254472

PATIENT
  Age: 17 Year
  Sex: Female
  Weight: 54 kg

DRUGS (3)
  1. RINVOQ [Suspect]
     Active Substance: UPADACITINIB
     Indication: Dermatitis atopic
     Dosage: FORM STRENGTH:15 MILLIGRAM?DRUG START DATE JUL 2022
     Route: 048
     Dates: end: 2023
  2. RINVOQ [Suspect]
     Active Substance: UPADACITINIB
     Indication: Dermatitis atopic
     Dosage: FORM STRENGTH:15 MILLIGRAM
     Route: 048
     Dates: start: 20220627, end: 20221222
  3. RINVOQ [Suspect]
     Active Substance: UPADACITINIB
     Indication: Dermatitis atopic
     Dosage: STOP DATE :2022?FORM STRENGTH: 15 MILLIGRAM
     Route: 048
     Dates: start: 20220707, end: 20221222

REACTIONS (10)
  - Staphylococcal infection [Recovered/Resolved]
  - Ocular hyperaemia [Unknown]
  - Eczema herpeticum [Recovered/Resolved]
  - Dermatitis acneiform [Unknown]
  - Ulcerative keratitis [Unknown]
  - Urticaria [Unknown]
  - Malaise [Unknown]
  - Skin exfoliation [Unknown]
  - Secretion discharge [Unknown]
  - Corneal disorder [Unknown]

NARRATIVE: CASE EVENT DATE: 20221219
